FAERS Safety Report 7797574-X (Version None)
Quarter: 2011Q4

REPORT INFORMATION
  Report Type: 
  Country: None (occurrence: None)
  Receive Date: 20111005
  Receipt Date: 20111004
  Transmission Date: 20120403
  Serious: Yes (Death, Other)
  Sender: FDA-Public Use
  Company Number: AU-B.I. PHARMACEUTICALS,INC./RIDGEFIELD-2011-AU-01672AU

PATIENT
  Age: 75 Year
  Sex: Male

DRUGS (1)
  1. PRADAXA [Suspect]
     Dosage: 300 MG
     Dates: start: 20110701

REACTIONS (3)
  - CEREBROVASCULAR ACCIDENT [None]
  - DEATH [None]
  - HAEMORRHAGE [None]
